FAERS Safety Report 12356073 (Version 1)
Quarter: 2016Q2

REPORT INFORMATION
  Report Type: Spontaneous
  Country: US (occurrence: US)
  Receive Date: 20160511
  Receipt Date: 20160511
  Transmission Date: 20160815
  Serious: No
  Sender: FDA-Public Use
  Company Number: US-ACTAVIS-2016-01294

PATIENT
  Age: 68 Year
  Sex: Female

DRUGS (3)
  1. MINOXIDIL (AMALLC) [Suspect]
     Active Substance: MINOXIDIL
     Indication: ALOPECIA
     Dosage: EVERY MORNING AND EVENING
     Route: 061
     Dates: start: 201510, end: 20160114
  2. MULTIVITAMIN                       /00097801/ [Concomitant]
     Active Substance: VITAMINS
  3. CALCIUM                            /00060701/ [Concomitant]
     Active Substance: CALCIUM

REACTIONS (1)
  - Hair growth abnormal [Not Recovered/Not Resolved]
